FAERS Safety Report 5325669-9 (Version None)
Quarter: 2007Q2

REPORT INFORMATION
  Report Type: 
  Country: None (occurrence: None)
  Receive Date: 20070509
  Receipt Date: 20070423
  Transmission Date: 20071010
  Serious: Yes (Other)
  Sender: FDA-Public Use
  Company Number: TRP_00939_2007

PATIENT
  Age: 50 Year
  Sex: Male
  Weight: 85.1855 kg

DRUGS (32)
  1. RIBASPHERE [Suspect]
     Indication: HEPATITIS C
     Dosage: (ORAL)
     Route: 048
     Dates: start: 20040501, end: 20040701
  2. PEG-INTRON [Suspect]
     Indication: HEPATITIS C
     Dosage: (SUBCUTANEOUS)
     Route: 058
  3. REBETOL [Suspect]
     Indication: HEPATITIS C
     Dosage: (800 MG QD)
     Dates: start: 20040201, end: 20040401
  4. REBETOL [Suspect]
     Indication: HEPATITIS C
     Dosage: (800 MG QD)
     Dates: start: 20040423, end: 20050204
  5. PEGASYS [Suspect]
     Indication: HEPATITIS C
     Dosage: (180 UG 1X/WEEK SUBCUTANEOUS)
     Route: 058
     Dates: start: 20040201, end: 20040811
  6. PEGASYS [Suspect]
     Indication: HEPATITIS C
     Dosage: (180 UG 1X/WEEK SUBCUTANEOUS)
     Route: 058
     Dates: start: 20040423, end: 20050204
  7. DIAZEPAM [Suspect]
     Dosage: (10 G QD)
     Dates: start: 20040128, end: 20040227
  8. DIAZEPAM [Suspect]
     Dosage: (10 MG QD)
     Dates: start: 20040303, end: 20040402
  9. DIAZEPAM [Suspect]
     Dosage: (10 MG QD)
     Dates: start: 20040521, end: 20041121
  10. DIAZEPAM [Suspect]
     Dosage: (10 MG QD)
     Dates: start: 20050304, end: 20050904
  11. HYDROCODONE BITARTRATE [Suspect]
     Indication: PAIN
     Dosage: (ORAL)
     Route: 048
     Dates: start: 19990101
  12. HYDROCODONE BITARTRATE [Suspect]
     Indication: PAIN
     Dosage: (ORAL)
     Route: 048
     Dates: start: 20040128, end: 20040227
  13. HYDROCODONE BITARTRATE [Suspect]
     Indication: PAIN
     Dosage: (ORAL)
     Route: 048
     Dates: start: 20040318, end: 20040402
  14. HYDROCODONE BITARTRATE [Suspect]
     Indication: PAIN
     Dosage: (ORAL)
     Route: 048
     Dates: start: 20040423, end: 20040523
  15. HYDROCODONE BITARTRATE [Suspect]
     Indication: PAIN
     Dosage: (ORAL)
     Route: 048
     Dates: start: 20040521, end: 20041121
  16. HYDROCODONE BITARTRATE [Suspect]
     Indication: PAIN
     Dosage: (ORAL)
     Route: 048
     Dates: end: 20060210
  17. ANALGESICS [Concomitant]
  18. ETODOLAC [Concomitant]
  19. SILDENAFIL CITRATE [Concomitant]
  20. SIMVASTATIN [Concomitant]
  21. UNSPECIFIED THERAPEUTIC AGENT (ALL OTHER THERAPEUTIC PRODUCTS) [Concomitant]
  22. OXYMETAZOLINE HYDROCHLORIDE [Concomitant]
  23. AMOXICILLIN [Concomitant]
  24. RANITIDINE [Concomitant]
  25. HERBAL NOS W/VITAMINS NOS [Concomitant]
  26. ASCORBIC ACID [Concomitant]
  27. ACETAMINOPHEN [Concomitant]
  28. VITAMIN CAP [Concomitant]
  29. MINERAL SUPPLEMENTS [Concomitant]
  30. HERBAL PREPARATION [Concomitant]
  31. VICODIN [Concomitant]
  32. SILDENAFIL CITRATE [Concomitant]

REACTIONS (27)
  - AMNESIA [None]
  - ANOREXIA [None]
  - ASTHENIA [None]
  - BURSITIS INFECTIVE [None]
  - CHEST PAIN [None]
  - CLUSTER HEADACHE [None]
  - DISTURBANCE IN ATTENTION [None]
  - DRUG DOSE OMISSION [None]
  - FATIGUE [None]
  - FEELING ABNORMAL [None]
  - HEART RATE DECREASED [None]
  - HYPERSOMNIA [None]
  - IMPAIRED WORK ABILITY [None]
  - INSOMNIA [None]
  - INTERVERTEBRAL DISC DEGENERATION [None]
  - MUSCULOSKELETAL PAIN [None]
  - NECK PAIN [None]
  - PAIN [None]
  - PAIN IN EXTREMITY [None]
  - PLATELET COUNT DECREASED [None]
  - POST-TRAUMATIC STRESS DISORDER [None]
  - SINUSITIS [None]
  - SKIN LESION [None]
  - STAPHYLOCOCCAL INFECTION [None]
  - THERMAL BURN [None]
  - VISION BLURRED [None]
  - WHITE BLOOD CELL COUNT DECREASED [None]
